FAERS Safety Report 13162702 (Version 2)
Quarter: 2017Q1

REPORT INFORMATION
  Report Type: Spontaneous
  Country: JP (occurrence: JP)
  Receive Date: 20170130
  Receipt Date: 20170310
  Transmission Date: 20170428
  Serious: Yes (Other)
  Sender: FDA-Public Use
  Company Number: JP-RECORDATI RARE DISEASES-JP-R13005-17-00010

PATIENT
  Weight: 1 kg

DRUGS (1)
  1. INDOCIN [Suspect]
     Active Substance: INDOMETHACIN
     Indication: PRODUCT USED FOR UNKNOWN INDICATION
     Route: 065
     Dates: end: 20170114

REACTIONS (5)
  - Gastric haemorrhage [Unknown]
  - Left ventricular failure [Unknown]
  - Pulmonary haemorrhage [Unknown]
  - Sepsis [Unknown]
  - Shock [Unknown]

NARRATIVE: CASE EVENT DATE: 201701
